FAERS Safety Report 12920494 (Version 1)
Quarter: 2016Q4

REPORT INFORMATION
  Report Type: Spontaneous
  Country: FR (occurrence: FR)
  Receive Date: 20161107
  Receipt Date: 20161107
  Transmission Date: 20170207
  Serious: Yes (Hospitalization)
  Sender: FDA-Public Use
  Company Number: FR-TEVA-708437ROM

PATIENT
  Age: 35 Year
  Sex: Female
  Weight: 72 kg

DRUGS (4)
  1. AMLODIPINE [Concomitant]
     Active Substance: AMLODIPINE BESYLATE
  2. COVERSYL [Concomitant]
     Active Substance: PERINDOPRIL
  3. LEELOO 0,1 MG/0,02 MG [Suspect]
     Active Substance: ETHINYL ESTRADIOL\LEVONORGESTREL
     Indication: CHEMICAL CONTRACEPTION
     Dosage: 1 DOSAGE FORM= 0.02 MG ETHINYLESTRADIOL +  0.1 MG LEVONORGESTREL.
     Route: 048
     Dates: start: 20160302, end: 20161013
  4. PLAVIX [Concomitant]
     Active Substance: CLOPIDOGREL BISULFATE

REACTIONS (3)
  - Subclavian artery occlusion [Recovered/Resolved with Sequelae]
  - Arterial thrombosis [Recovered/Resolved with Sequelae]
  - Peripheral ischaemia [Recovered/Resolved with Sequelae]

NARRATIVE: CASE EVENT DATE: 20160921
